FAERS Safety Report 11635677 (Version 1)
Quarter: 2015Q4

REPORT INFORMATION
  Report Type: Spontaneous
  Country: US (occurrence: US)
  Receive Date: 20151016
  Receipt Date: 20151016
  Transmission Date: 20160304
  Serious: No
  Sender: FDA-Public Use
  Company Number: US-PFIZER INC-2015342291

PATIENT
  Sex: Female
  Weight: 63 kg

DRUGS (2)
  1. DILANTIN [Suspect]
     Active Substance: PHENYTOIN
     Dosage: 300 MG ONE DAY, 350 MG THE NEXT DAY
     Dates: start: 1989
  2. DILANTIN [Suspect]
     Active Substance: PHENYTOIN
     Indication: SEIZURE
     Dosage: 330 MG, DAILY (100 MG CAPSULE IN THE MORNING, 230 MG CAPSULE AT NIGHT)
     Route: 048

REACTIONS (1)
  - Bone disorder [Not Recovered/Not Resolved]
